FAERS Safety Report 4633065-2 (Version None)
Quarter: 2005Q2

REPORT INFORMATION
  Report Type: 
  Country: None (occurrence: None)
  Receive Date: 20050325
  Receipt Date: 20041221
  Transmission Date: 20051028
  Serious: No
  Sender: FDA-Public Use
  Company Number: USA030845065

PATIENT
  Age: 83 Year
  Sex: Female

DRUGS (5)
  1. FORTEO [Suspect]
     Indication: OSTEOPOROSIS
     Dates: start: 20030807, end: 20041201
  2. OXYBUTYNIN [Concomitant]
  3. PROTONIX [Concomitant]
  4. ZELNORM (ZELNORM) [Concomitant]
  5. CORDARONE [Concomitant]

REACTIONS (6)
  - BONE DENSITY DECREASED [None]
  - INJECTION SITE ERYTHEMA [None]
  - INJECTION SITE URTICARIA [None]
  - INJECTION SITE VESICLES [None]
  - NOCTURIA [None]
  - POLLAKIURIA [None]
